FAERS Safety Report 4282078-1 (Version None)
Quarter: 2004Q1

REPORT INFORMATION
  Report Type: 
  Country: None (occurrence: None)
  Receive Date: 20040130
  Receipt Date: 20030303
  Transmission Date: 20041129
  Serious: Yes (Hospitalization)
  Sender: FDA-Public Use
  Company Number: US-BRISTOL-MYERS SQUIBB COMPANY-12199782

PATIENT
  Age: 50 Year
  Sex: Female
  Weight: 79 kg

DRUGS (2)
  1. TRAZODONE HCL [Suspect]
     Route: 048
     Dates: start: 19950101
  2. WELLBUTRIN SR [Suspect]
     Indication: DEPRESSION
     Dosage: VARIABLE DOSE-200-300MG/DAY
     Route: 048
     Dates: start: 20010701

REACTIONS (1)
  - SUPRAVENTRICULAR TACHYCARDIA [None]
